FAERS Safety Report 5072574-1 (Version None)
Quarter: 2006Q3

REPORT INFORMATION
  Report Type: 
  Country: None (occurrence: None)
  Receive Date: 20060807
  Receipt Date: 20060306
  Transmission Date: 20061208
  Serious: Yes (Hospitalization)
  Sender: FDA-Public Use
  Company Number: US-ROCHE-439163

PATIENT
  Age: 27 Year
  Sex: Female
  Weight: 59 kg

DRUGS (1)
  1. ACCUTANE [Suspect]
     Indication: ACNE
     Route: 048
     Dates: start: 19881115, end: 19890515

REACTIONS (32)
  - ABORTION [None]
  - ANAEMIA [None]
  - ASCITES [None]
  - BACK PAIN [None]
  - BILIARY CIRRHOSIS PRIMARY [None]
  - BILOMA [None]
  - CHOLELITHIASIS [None]
  - COLITIS ULCERATIVE [None]
  - COMPLICATIONS OF TRANSPLANTED LIVER [None]
  - DRUG EXPOSURE DURING PREGNANCY [None]
  - GASTRIC ULCER HAEMORRHAGE [None]
  - GASTRIC ULCER PERFORATION [None]
  - GASTROOESOPHAGEAL REFLUX DISEASE [None]
  - HAEMATOCHEZIA [None]
  - HAEMATOMA [None]
  - HEADACHE [None]
  - HEPATIC ENZYME INCREASED [None]
  - HEPATIC FAILURE [None]
  - HEPATIC STEATOSIS [None]
  - HIATUS HERNIA [None]
  - INFLAMMATORY BOWEL DISEASE [None]
  - JAUNDICE [None]
  - LIVER FUNCTION TEST ABNORMAL [None]
  - LIVER TRANSPLANT [None]
  - OEDEMA [None]
  - OEDEMA PERIPHERAL [None]
  - PORTAL HYPERTENSION [None]
  - PREGNANCY [None]
  - PRURITUS [None]
  - SINUSITIS [None]
  - SPLENOMEGALY [None]
  - VARICES OESOPHAGEAL [None]
